FAERS Safety Report 4645526-0 (Version None)
Quarter: 2005Q2

REPORT INFORMATION
  Report Type: 
  Country: None (occurrence: None)
  Receive Date: 20050425
  Receipt Date: 20050414
  Transmission Date: 20051028
  Serious: Yes (Other)
  Sender: FDA-Public Use
  Company Number: 2005059102

PATIENT
  Age: 36 Year
  Sex: Male

DRUGS (4)
  1. PHENYTOIN [Suspect]
     Indication: EPILEPSY
     Dosage: 50 MG (NOCTE), ORAL
     Route: 048
  2. LYRICA [Suspect]
     Indication: ILL-DEFINED DISORDER
     Dates: start: 20041116
  3. TEMOZOLOMIDE (TEMOZOLOMIDE) [Suspect]
     Indication: ILL-DEFINED DISORDER
     Dosage: ORAL
     Route: 048
     Dates: start: 20050201
  4. CARBAMAZEPINE [Suspect]
     Indication: EPILEPSY
     Dosage: 1200 MG (400 MG, 3 IN 1 D)

REACTIONS (2)
  - CONVULSION [None]
  - DIZZINESS [None]
